FAERS Safety Report 7752161-4 (Version None)
Quarter: 2011Q3

REPORT INFORMATION
  Report Type: 
  Country: None (occurrence: None)
  Receive Date: 20110915
  Receipt Date: 20110909
  Transmission Date: 20111222
  Serious: No
  Sender: FDA-Public Use
  Company Number: US-PFIZER INC-2011212765

PATIENT
  Sex: Female
  Weight: 65.8 kg

DRUGS (1)
  1. NEURONTIN [Suspect]
     Indication: ANXIETY
     Dosage: 1300 MG, 1X/DAY
     Route: 048
     Dates: start: 20030101

REACTIONS (1)
  - HAIR DISORDER [None]
